FAERS Safety Report 8305066-4 (Version None)
Quarter: 2012Q2

REPORT INFORMATION
  Report Type: 
  Country: None (occurrence: None)
  Receive Date: 20120423
  Receipt Date: 20120412
  Transmission Date: 20120825
  Serious: Yes (Hospitalization)
  Sender: FDA-Public Use
  Company Number: BR-ASTRAZENECA-2012SE24424

PATIENT
  Age: 64 Year
  Sex: Female
  Weight: 78 kg

DRUGS (6)
  1. ATORVASTATIN [Concomitant]
     Route: 048
  2. OMEPRAZOLE [Suspect]
     Indication: GASTRITIS PROPHYLAXIS
     Route: 048
  3. BRILINTA [Suspect]
     Indication: CARDIOVASCULAR EVENT PROPHYLAXIS
     Route: 048
     Dates: start: 20120412
  4. CARVEDILOL [Concomitant]
     Route: 048
  5. SOMALGIN CARDIO [Concomitant]
     Route: 048
  6. RECONTER [Concomitant]
     Route: 048

REACTIONS (2)
  - DYSPNOEA [None]
  - MYOCARDIAL INFARCTION [None]
